FAERS Safety Report 24711382 (Version 2)
Quarter: 2024Q4

REPORT INFORMATION
  Report Type: Spontaneous
  Country: JP (occurrence: JP)
  Receive Date: 20241209
  Receipt Date: 20241230
  Transmission Date: 20250114
  Serious: Yes (Death)
  Sender: MERCK
  Company Number: JP-BAYER-2024A170975

PATIENT
  Age: 89 Year
  Sex: Male

DRUGS (1)
  1. VERICIGUAT [Suspect]
     Active Substance: VERICIGUAT
     Indication: Cardiac failure chronic
     Dosage: DAILY DOSE 5 MG
     Dates: start: 20241008, end: 20241119

REACTIONS (1)
  - Brain natriuretic peptide increased [Fatal]

NARRATIVE: CASE EVENT DATE: 20241001
